FAERS Safety Report 23741381 (Version 1)
Quarter: 2024Q2

REPORT INFORMATION
  Report Type: Report from Study
  Country: US (occurrence: US)
  Receive Date: 20240415
  Receipt Date: 20240415
  Transmission Date: 20240716
  Serious: Yes (Other)
  Sender: FDA-Public Use
  Company Number: US-TAKEDA-2024TUS034797

PATIENT
  Sex: Male

DRUGS (1)
  1. ALOGLIPTIN [Suspect]
     Active Substance: ALOGLIPTIN
     Indication: Product used for unknown indication
     Dosage: 25 MILLIGRAM, QD
     Route: 048

REACTIONS (2)
  - Dementia Alzheimer^s type [Unknown]
  - Product use issue [Unknown]
